FAERS Safety Report 7908574-0 (Version None)
Quarter: 2011Q4

REPORT INFORMATION
  Report Type: 
  Country: None (occurrence: None)
  Receive Date: 20111111
  Receipt Date: 20111108
  Transmission Date: 20120403
  Serious: Yes (Hospitalization, Other)
  Sender: FDA-Public Use
  Company Number: US-PFIZER INC-2011176856

PATIENT
  Sex: Male

DRUGS (6)
  1. LYRICA [Suspect]
     Dosage: 300 MG, 1X/DAY
     Route: 048
     Dates: end: 20110509
  2. LYRICA [Suspect]
     Indication: BACK PAIN
     Dosage: 150 MG, 1X/DAY
     Route: 048
     Dates: start: 20110413
  3. KLONOPIN [Concomitant]
     Dosage: 0.5 MG, UNK
     Dates: end: 20110509
  4. AMBIEN [Concomitant]
     Dosage: 10 MG, 1X/DAY
     Dates: end: 20110509
  5. CYMBALTA [Concomitant]
     Dosage: 90 MG, UNK
     Dates: end: 20110509
  6. NEXIUM [Concomitant]
     Dosage: 40 MG, UNK
     Dates: end: 20110509

REACTIONS (3)
  - PSYCHOTIC DISORDER [None]
  - PARANOIA [None]
  - SUICIDAL IDEATION [None]
